FAERS Safety Report 5268770-0 (Version None)
Quarter: 2007Q1

REPORT INFORMATION
  Report Type: 
  Country: None (occurrence: None)
  Receive Date: 20070319
  Receipt Date: 20070308
  Transmission Date: 20070707
  Serious: Yes (Hospitalization)
  Sender: FDA-Public Use
  Company Number: US-KINGPHARMUSA00001-K200700264

PATIENT

DRUGS (6)
  1. ALTACE [Suspect]
  2. FRUSEMIDE     /00032601/ [Suspect]
     Dosage: 60 MG, UNK
  3. FRUSEMIDE     /00032601/ [Suspect]
     Dosage: 40 MG, UNK
  4. BISOPROLOL [Suspect]
     Dosage: 5 MG, UNK
  5. BISOPROLOL [Suspect]
     Dosage: 1.25 MG, UNK
  6. CRESTOR [Concomitant]
     Indication: HYPERCHOLESTEROLAEMIA
     Dosage: 10 MG, UNK
     Route: 048

REACTIONS (3)
  - DIZZINESS [None]
  - FEELING ABNORMAL [None]
  - ORTHOSTATIC HYPOTENSION [None]
